FAERS Safety Report 7760766-X (Version None)
Quarter: 2011Q3

REPORT INFORMATION
  Report Type: 
  Country: None (occurrence: None)
  Receive Date: 20110919
  Receipt Date: 20110606
  Transmission Date: 20111222
  Serious: No
  Sender: FDA-Public Use
  Company Number: US-ALLERGAN-1107033US

PATIENT
  Age: 43 Year
  Sex: Female

DRUGS (4)
  1. DROPS FOR DRY EYES [Concomitant]
     Indication: DRY EYE
     Route: 047
  2. LATISSE [Suspect]
     Dosage: 1 GTT, UNK
     Route: 061
     Dates: start: 20110524
  3. LATISSE [Suspect]
     Indication: GROWTH OF EYELASHES
     Dosage: 1 GTT, QHS
     Route: 061
     Dates: start: 20091201, end: 20100501
  4. LATISSE [Suspect]
     Dosage: UNK
     Dates: start: 20100501, end: 20110401

REACTIONS (5)
  - WRONG TECHNIQUE IN DRUG USAGE PROCESS [None]
  - INAPPROPRIATE SCHEDULE OF DRUG ADMINISTRATION [None]
  - MADAROSIS [None]
  - HAIR GROWTH ABNORMAL [None]
  - TRICHORRHEXIS [None]
